FAERS Safety Report 10527452 (Version 4)
Quarter: 2014Q4

REPORT INFORMATION
  Report Type: Spontaneous
  Country: CA (occurrence: CA)
  Receive Date: 20141020
  Receipt Date: 20141114
  Transmission Date: 20150528
  Serious: Yes (Death, Life-Threatening, Hospitalization, Other)
  Sender: FDA-Public Use
  Company Number: CA-BAXTER-2014BAX060983

PATIENT
  Age: 66 Year
  Sex: Female

DRUGS (2)
  1. DIANEAL LOW CALCIUM PERITONEAL DIALYSIS SOLUTION WITH DEXTROSE [Suspect]
     Active Substance: CALCIUM CHLORIDE\DEXTROSE\MAGNESIUM CHLORIDE\SODIUM CHLORIDE\SODIUM LACTATE
     Indication: RENAL FAILURE
     Dosage: 2 BAGS
     Route: 033
     Dates: end: 20141003
  2. EXTRANEAL [Suspect]
     Active Substance: CALCIUM CHLORIDE\ICODEXTRIN\MAGNESIUM CHLORIDE\SODIUM CHLORIDE\SODIUM LACTATE
     Indication: RENAL FAILURE
     Dosage: 1 BAG
     Route: 033
     Dates: end: 20141003

REACTIONS (7)
  - Sarcoma metastatic [Not Recovered/Not Resolved]
  - Metastases to lung [Not Recovered/Not Resolved]
  - Internal injury [Unknown]
  - Neoplasm malignant [Fatal]
  - General physical health deterioration [Not Recovered/Not Resolved]
  - Purulent discharge [Unknown]
  - Peritoneal effluent abnormal [Unknown]

NARRATIVE: CASE EVENT DATE: 20141003
